FAERS Safety Report 23369465 (Version 1)
Quarter: 2024Q1

REPORT INFORMATION
  Report Type: Spontaneous
  Country: US (occurrence: US)
  Receive Date: 20240105
  Receipt Date: 20240105
  Transmission Date: 20240410
  Serious: Yes (Other)
  Sender: FDA-Public Use
  Company Number: US-MYLANLABS-2024M1000591

PATIENT
  Age: 63 Year
  Sex: Male

DRUGS (3)
  1. SODIUM CHLORIDE [Suspect]
     Active Substance: SODIUM CHLORIDE
     Indication: Hypercalcaemia
     Dosage: UNK
     Route: 042
  2. MIACALCIN [Suspect]
     Active Substance: CALCITONIN SALMON
     Indication: Hypercalcaemia
     Dosage: UNK
     Route: 065
  3. KETOCONAZOLE [Suspect]
     Active Substance: KETOCONAZOLE
     Indication: Hypercalcaemia
     Dosage: UNK
     Route: 065

REACTIONS (2)
  - Treatment failure [Unknown]
  - Off label use [Unknown]
